FAERS Safety Report 4731847-X (Version None)
Quarter: 2005Q3

REPORT INFORMATION
  Report Type: 
  Country: None (occurrence: None)
  Receive Date: 20050725
  Receipt Date: 20050202
  Transmission Date: 20060218
  Serious: Yes (Other)
  Sender: FDA-Public Use
  Company Number: WAES 0502USA00312

PATIENT
  Age: 48 Year
  Sex: Male
  Weight: 79.8331 kg

DRUGS (4)
  1. VIOXX [Suspect]
     Indication: ARTHRALGIA
     Dosage: 50 MG/DAILY/PO
     Route: 048
     Dates: start: 20040714, end: 20041115
  2. VIOXX [Suspect]
     Indication: SHOULDER PAIN
     Dosage: 50 MG/DAILY/PO
     Route: 048
     Dates: start: 20040714, end: 20041115
  3. LIPITOR [Concomitant]
  4. VIAGRA [Concomitant]

REACTIONS (4)
  - ALANINE AMINOTRANSFERASE INCREASED [None]
  - ASPARTATE AMINOTRANSFERASE INCREASED [None]
  - BLOOD ALKALINE PHOSPHATASE INCREASED [None]
  - PROSTATITIS [None]
